FAERS Safety Report 11749179 (Version 1)
Quarter: 2015Q4

REPORT INFORMATION
  Report Type: Spontaneous
  Country: US (occurrence: US)
  Receive Date: 20151118
  Receipt Date: 20151118
  Transmission Date: 20160304
  Serious: Yes (Other)
  Sender: FDA-Public Use
  Company Number: US-SUN PHARMACEUTICAL INDUSTRIES LTD-2015US-106185

PATIENT
  Sex: Female

DRUGS (6)
  1. ZOLEDRONIC ACID [Suspect]
     Active Substance: ZOLEDRONIC ACID
     Indication: BREAST CANCER METASTATIC
     Dosage: UNK
     Route: 065
  2. PEMETREXED [Suspect]
     Active Substance: PEMETREXED
     Indication: BREAST CANCER METASTATIC
     Dosage: 2 ROUNDS
     Route: 065
  3. ZOLEDRONIC ACID [Suspect]
     Active Substance: ZOLEDRONIC ACID
     Indication: BREAST CANCER METASTATIC
     Dosage: ONCE A MONTH
     Route: 065
  4. CAPECITABINE. [Suspect]
     Active Substance: CAPECITABINE
     Indication: BREAST CANCER METASTATIC
     Dosage: UNK
     Route: 065
  5. TAXOTERET CISPLATIN [Suspect]
     Active Substance: CISPLATIN\PACLITAXEL
     Indication: BREAST CANCER METASTATIC
     Dosage: 1 ROUND
     Route: 065
  6. TAXOL+CISPLATIN [Suspect]
     Active Substance: CISPLATIN\PACLITAXEL
     Indication: BREAST CANCER METASTATIC
     Dosage: UNK
     Route: 065
     Dates: start: 201202

REACTIONS (6)
  - Neoplasm progression [Unknown]
  - Drug hypersensitivity [None]
  - Breast cancer metastatic [None]
  - Tumour marker increased [Recovering/Resolving]
  - Metastases to bone [None]
  - Metastasis [Unknown]
